FAERS Safety Report 6924363-8 (Version None)
Quarter: 2010Q3

REPORT INFORMATION
  Report Type: 
  Country: None (occurrence: None)
  Receive Date: 20100811
  Receipt Date: 20100811
  Transmission Date: 20110219
  Serious: No
  Sender: FDA-Public Use
  Company Number: None

PATIENT
  Sex: Female
  Weight: 48.8524 kg

DRUGS (5)
  1. AMBIEN [Suspect]
     Indication: INSOMNIA
     Dosage: 10 MG PO QHS
     Route: 048
     Dates: start: 20080101, end: 20080301
  2. PROZAC [Concomitant]
  3. NEXIUM [Concomitant]
  4. LOESTRIN 1.5/30 [Concomitant]
  5. MULTI-VITAMIN [Concomitant]

REACTIONS (1)
  - AGITATION [None]
